FAERS Safety Report 19120738 (Version 1)
Quarter: 2021Q2

REPORT INFORMATION
  Report Type: Spontaneous
  Country: US (occurrence: US)
  Receive Date: 20210411
  Receipt Date: 20210411
  Transmission Date: 20210717
  Serious: No
  Sender: FDA-Public Use
  Company Number: None

PATIENT
  Age: 62 Year
  Sex: Female
  Weight: 90 kg

DRUGS (4)
  1. IRON [Concomitant]
     Active Substance: IRON
  2. METHOTREXATE INJECTION, USP [Suspect]
     Active Substance: METHOTREXATE
     Indication: RHEUMATOID ARTHRITIS
     Dosage: ?          QUANTITY:1 INJECTION(S);OTHER FREQUENCY:ONCE WEEKLY;?
     Route: 030
     Dates: start: 20210408, end: 20210408
  3. POTASSIUM [Concomitant]
     Active Substance: POTASSIUM
  4. TRIAMTERENE HYDROCHLORATHIAZIDE [Concomitant]

REACTIONS (7)
  - Abdominal pain upper [None]
  - Dizziness [None]
  - Headache [None]
  - Pyrexia [None]
  - Nasopharyngitis [None]
  - Vomiting [None]
  - Diarrhoea [None]

NARRATIVE: CASE EVENT DATE: 20210408
